FAERS Safety Report 9589968 (Version 1)
Quarter: 2013Q4

REPORT INFORMATION
  Report Type: Spontaneous
  Country: US (occurrence: US)
  Receive Date: 20131003
  Receipt Date: 20131003
  Transmission Date: 20140711
  Serious: No
  Sender: FDA-Public Use
  Company Number: US-AMGEN-USASP2012073928

PATIENT
  Age: 51 Year
  Sex: Female
  Weight: 77.1 kg

DRUGS (8)
  1. ENBREL [Suspect]
     Indication: RHEUMATOID ARTHRITIS
     Dosage: 50 MG, QWK
     Route: 058
  2. PANTOPRAZOLE [Concomitant]
     Dosage: 20 MG, UNK
  3. PREDNISONE [Concomitant]
     Dosage: 1 MG, UNK
  4. ZYRTEC [Concomitant]
     Dosage: 10 MG, UNK
  5. ATENOLOL [Concomitant]
     Dosage: 25 MG, UNK
  6. B COMPLEX                          /00212701/ [Concomitant]
     Dosage: UNK
  7. MULTIVITAMINS, PLAIN [Concomitant]
     Dosage: UNK
  8. EVAMIST [Concomitant]
     Dosage: 1.53 MG, UNK

REACTIONS (1)
  - Drug ineffective [Unknown]
